FAERS Safety Report 25890659 (Version 1)
Quarter: 2025Q4

REPORT INFORMATION
  Report Type: Spontaneous
  Country: US (occurrence: None)
  Receive Date: 20251006
  Receipt Date: 20251006
  Transmission Date: 20260117
  Serious: Yes (Other)
  Sender: FDA-CTU
  Company Number: None

PATIENT
  Age: 70 Year
  Sex: Female
  Weight: 122.67 kg

DRUGS (36)
  1. REPATHA [Suspect]
     Active Substance: EVOLOCUMAB
     Indication: Type IIa hyperlipidaemia
     Dosage: OTHER QUANTITY : 1 INJECTION(S);?OTHER FREQUENCY : EVERY 2 WEEKS;?
     Route: 058
     Dates: start: 20250902, end: 20250917
  2. LEVOTHYROXINE [Concomitant]
     Active Substance: LEVOTHYROXINE
  3. LIOTHYRONINE [Concomitant]
     Active Substance: LIOTHYRONINE
  4. LOSARTAN POTASSIUM [Concomitant]
     Active Substance: LOSARTAN POTASSIUM
  5. Oral orthotic for sleep apnea [Concomitant]
  6. SELENIUM [Concomitant]
     Active Substance: SELENIUM
  7. Ubiquinol CoQH [Concomitant]
  8. GARLIC [Concomitant]
     Active Substance: GARLIC
  9. pantetheine [Concomitant]
  10. VITAMIN C [Concomitant]
     Active Substance: ASCORBIC ACID
  11. IRON [Concomitant]
     Active Substance: IRON
  12. Liposomal Glutathione [Concomitant]
  13. R-Alpha Lipoic Acid [Concomitant]
  14. Zinc + Copper [Concomitant]
  15. K2 MK-+ + D3 [Concomitant]
  16. BENFOTIAMINE [Concomitant]
     Active Substance: BENFOTIAMINE
  17. PROBIOTICS NOS [Concomitant]
     Active Substance: PROBIOTICS NOS
  18. Ultra E Fem [Concomitant]
  19. FISH OIL [Concomitant]
     Active Substance: FISH OIL
  20. Ceylon Cinnamon [Concomitant]
  21. MAGNESIUM MALATE [Concomitant]
     Active Substance: MAGNESIUM MALATE
  22. HERBALS [Concomitant]
     Active Substance: HERBALS
  23. Beet Root [Concomitant]
  24. ASPIRIN [Concomitant]
     Active Substance: ASPIRIN
  25. N.A.C [Concomitant]
  26. Bone Strength [Concomitant]
  27. Resveratrol + Grape Seed + Red Wine Extracts [Concomitant]
  28. HERBALS\TURMERIC [Concomitant]
     Active Substance: HERBALS\TURMERIC
  29. HERBALS\TURMERIC [Concomitant]
     Active Substance: HERBALS\TURMERIC
  30. Quercetin and Bromelain [Concomitant]
  31. Magnesium Taurate [Concomitant]
  32. Magnesium Bisglycinate [Concomitant]
  33. GINGER [Concomitant]
     Active Substance: GINGER
  34. Liver Formula [Concomitant]
  35. Tart Cherry + Grape Seed Extract Blend [Concomitant]
  36. Cranberry fruit concentrate [Concomitant]

REACTIONS (13)
  - Therapy cessation [None]
  - Diarrhoea [None]
  - Blood glucose increased [None]
  - Abdominal pain [None]
  - Abdominal distension [None]
  - Gastrointestinal pain [None]
  - Blood pressure systolic increased [None]
  - Fatigue [None]
  - Rash [None]
  - Pruritus [None]
  - Back pain [None]
  - Dysstasia [None]
  - Gait inability [None]

NARRATIVE: CASE EVENT DATE: 20250918
